FAERS Safety Report 16819601 (Version 7)
Quarter: 2020Q1

REPORT INFORMATION
  Report Type: Report from Study
  Country: US (occurrence: US)
  Receive Date: 20190917
  Receipt Date: 20200220
  Transmission Date: 20200409
  Serious: Yes (Hospitalization)
  Sender: FDA-Public Use
  Company Number: US-ACTELION-A-NJ2019-195591

PATIENT
  Age: 63 Year
  Sex: Female
  Weight: 134.69 kg

DRUGS (5)
  1. UPTRAVI [Concomitant]
     Active Substance: SELEXIPAG
     Indication: PULMONARY ARTERIAL HYPERTENSION
     Route: 048
  2. ADEMPAS [Concomitant]
     Active Substance: RIOCIGUAT
  3. OPSUMIT [Suspect]
     Active Substance: MACITENTAN
     Indication: PULMONARY ARTERIAL HYPERTENSION
     Dosage: 10 MG, QD
     Route: 048
  4. SILDENAFIL CITRATE. [Concomitant]
     Active Substance: SILDENAFIL CITRATE
  5. RIOCIGUAT. [Concomitant]
     Active Substance: RIOCIGUAT

REACTIONS (18)
  - Haemoglobin decreased [Unknown]
  - Memory impairment [Unknown]
  - Blood creatinine increased [Unknown]
  - Rheumatoid arthritis [Unknown]
  - Cardiac failure [Unknown]
  - Fluid retention [Unknown]
  - Dialysis [Unknown]
  - Renal impairment [Unknown]
  - Renal failure [Unknown]
  - Feeling abnormal [Unknown]
  - Anaemia [Unknown]
  - Transfusion [Unknown]
  - Nausea [Unknown]
  - Product dose omission [Unknown]
  - Fall [Unknown]
  - Hypotension [Unknown]
  - Nervousness [Unknown]
  - Cough [Not Recovered/Not Resolved]

NARRATIVE: CASE EVENT DATE: 20191019
